FAERS Safety Report 17214578 (Version 1)
Quarter: 2020Q1

REPORT INFORMATION
  Report Type: Spontaneous
  Country: US (occurrence: US)
  Receive Date: 20191227
  Receipt Date: 20191227
  Transmission Date: 20200409
  Serious: Yes (Life-Threatening, Disabling)
  Sender: FDA-Public Use
  Company Number: None

PATIENT
  Age: 53 Year
  Sex: Female
  Weight: 83.25 kg

DRUGS (1)
  1. LEVAQUIN [Suspect]
     Active Substance: LEVOFLOXACIN
     Indication: PRODUCT USED FOR UNKNOWN INDICATION
     Dates: start: 20080715, end: 20080719

REACTIONS (11)
  - Rash erythematous [None]
  - Arthralgia [None]
  - Headache [None]
  - Tendon rupture [None]
  - Hepatic failure [None]
  - Depression [None]
  - Confusional state [None]
  - Pain [None]
  - Insomnia [None]
  - Anxiety [None]
  - Renal failure [None]

NARRATIVE: CASE EVENT DATE: 20080715
